FAERS Safety Report 9516166 (Version 1)
Quarter: 2013Q3

REPORT INFORMATION
  Report Type: Report from Study
  Country: US (occurrence: US)
  Receive Date: 20130911
  Receipt Date: 20130911
  Transmission Date: 20140515
  Serious: Yes (Other)
  Sender: FDA-Public Use
  Company Number: US-ROCHE-1270048

PATIENT
  Sex: Female

DRUGS (3)
  1. HERCEPTIN [Suspect]
     Indication: BREAST CANCER
     Route: 042
     Dates: start: 2012, end: 2013
  2. CARBOPLATIN [Concomitant]
     Indication: BREAST CANCER
  3. COUMADIN [Concomitant]
     Indication: BLOOD DISORDER

REACTIONS (7)
  - Arrhythmia [Recovered/Resolved]
  - Cardiomegaly [Not Recovered/Not Resolved]
  - Dizziness [Recovered/Resolved]
  - Malaise [Recovered/Resolved]
  - Paraesthesia [Not Recovered/Not Resolved]
  - Cyanosis [Not Recovered/Not Resolved]
  - Chest discomfort [Not Recovered/Not Resolved]
